FAERS Safety Report 25172473 (Version 1)
Quarter: 2025Q2

REPORT INFORMATION
  Report Type: Spontaneous
  Country: US (occurrence: US)
  Receive Date: 20250408
  Receipt Date: 20250408
  Transmission Date: 20250717
  Serious: Yes (Other)
  Sender: PFIZER
  Company Number: US-PFIZER INC-PV202500039249

PATIENT
  Age: 17 Year
  Sex: Female

DRUGS (1)
  1. VECURONIUM BROMIDE [Suspect]
     Active Substance: VECURONIUM BROMIDE
     Route: 042

REACTIONS (2)
  - Paralysis [Recovered/Resolved]
  - Recurrence of neuromuscular blockade [Recovered/Resolved]
